FAERS Safety Report 9328748 (Version 3)
Quarter: 2013Q2

REPORT INFORMATION
  Report Type: Spontaneous
  Country: US (occurrence: None)
  Receive Date: 20130531
  Receipt Date: 20130627
  Transmission Date: 20140414
  Serious: Yes (Other)
  Sender: FDA-Public Use
  Company Number: JPI-P-032171

PATIENT
  Age: 61 Year
  Sex: Female

DRUGS (1)
  1. XYREM (500 MILLIGRAM/MILLILITERS, SOLUTION) (SODIUM OXYBATE) [Suspect]
     Indication: CATAPLEXY
     Dosage: 3GM (1.5GM, 2 IN 1D), ORAL
     Route: 048
     Dates: start: 20060512

REACTIONS (5)
  - Limb operation [None]
  - Anxiety [None]
  - Depression [None]
  - Incorrect dose administered [None]
  - Mental disorder [None]
